FAERS Safety Report 5518020-2 (Version None)
Quarter: 2007Q4

REPORT INFORMATION
  Report Type: 
  Country: None (occurrence: None)
  Receive Date: 20071113
  Receipt Date: 20071113
  Transmission Date: 20080405
  Serious: Yes (Death)
  Sender: FDA-Public Use
  Company Number: None

PATIENT
  Age: 32 Year
  Sex: Male

DRUGS (1)
  1. DILANTIN [Suspect]
     Indication: EPILEPSY
     Dosage: 100MG  5XDAILY  PO
     Route: 048
     Dates: start: 20071027, end: 20071030

REACTIONS (2)
  - PHARMACEUTICAL PRODUCT COMPLAINT [None]
  - SUDDEN DEATH [None]
